FAERS Safety Report 10185137 (Version 1)
Quarter: 2014Q2

REPORT INFORMATION
  Report Type: Spontaneous
  Country: CA (occurrence: None)
  Receive Date: 20140519
  Receipt Date: 20140519
  Transmission Date: 20141212
  Serious: Yes (Other)
  Sender: FDA-Public Use
  Company Number: 2014CA0216

PATIENT
  Sex: Female

DRUGS (8)
  1. ANAKINRA [Suspect]
     Indication: JUVENILE IDIOPATHIC ARTHRITIS
  2. ENBREL (ETANERCEPT) (ETANERCEPT) [Suspect]
     Indication: JUVENILE IDIOPATHIC ARTHRITIS
  3. INFLIXIMAB (INFLIXIMAB) [Suspect]
     Indication: JUVENILE IDIOPATHIC ARTHRITIS
  4. ETOPOSIDE (ETOPOSIDE) [Suspect]
     Indication: PRODUCT USED FOR UNKNOWN INDICATION
  5. MTX [Concomitant]
  6. CYCLOSPORIN A (CICLOSPORIN) [Concomitant]
  7. TACROLIMUS (TACROLIMUS) [Concomitant]
  8. THALIDOMIDE [Concomitant]

REACTIONS (1)
  - Hepatosplenic T-cell lymphoma [None]
